FAERS Safety Report 6450450-7 (Version None)
Quarter: 2009Q4

REPORT INFORMATION
  Report Type: 
  Country: None (occurrence: None)
  Receive Date: 20091123
  Receipt Date: 20091020
  Transmission Date: 20100525
  Serious: No
  Sender: FDA-Public Use
  Company Number: US-BAYER-200938375NA

PATIENT
  Age: 87 Year
  Sex: Female
  Weight: 73 kg

DRUGS (10)
  1. ULTRAVIST 150 [Suspect]
     Indication: COMPUTERISED TOMOGRAM ABDOMEN
     Dosage: 2 ML/SEC INTO LEFT ANTECUBITAL, POWER INJECTOR AND WARMER
     Route: 042
     Dates: start: 20091020, end: 20091020
  2. LEXAPRO [Concomitant]
  3. PLAVIX [Concomitant]
  4. ACIPHEX [Concomitant]
  5. CRESTOR [Concomitant]
  6. TOPROL-XL [Concomitant]
  7. RIMANTADINE HYDROCHLORIDE [Concomitant]
  8. BENADRYL [Concomitant]
     Dosage: AS USED: 50 MG
     Dates: start: 20091020, end: 20091020
  9. PREDNISONE [Concomitant]
     Dosage: AS USED: 50 MG
     Route: 048
     Dates: start: 20091019, end: 20091020
  10. READI-CAT [Concomitant]

REACTIONS (2)
  - HEADACHE [None]
  - URTICARIA [None]
